FAERS Safety Report 22063865 (Version 1)
Quarter: 2023Q1

REPORT INFORMATION
  Report Type: Spontaneous
  Country: US (occurrence: None)
  Receive Date: 20230228
  Receipt Date: 20230228
  Transmission Date: 20230417
  Serious: Yes (Life-Threatening)
  Sender: FDA-Public Use
  Company Number: None

PATIENT
  Age: 34 Year
  Sex: Female
  Weight: 71.67 kg

DRUGS (1)
  1. MONTELUKAST SODIUM [Suspect]
     Active Substance: MONTELUKAST SODIUM
     Route: 048
     Dates: start: 20230124, end: 20230208

REACTIONS (5)
  - Dizziness [None]
  - Fatigue [None]
  - Abdominal pain upper [None]
  - Syncope [None]
  - Disorientation [None]

NARRATIVE: CASE EVENT DATE: 20230124
